FAERS Safety Report 24928777 (Version 1)
Quarter: 2025Q1

REPORT INFORMATION
  Report Type: Spontaneous
  Country: CN (occurrence: CN)
  Receive Date: 20250205
  Receipt Date: 20250205
  Transmission Date: 20250408
  Serious: Yes (Hospitalization, Other)
  Sender: GLAND PHARMA LTD
  Company Number: CN-GLANDPHARMA-CN-2025GLNLIT00174

PATIENT
  Age: 52 Year
  Sex: Male

DRUGS (6)
  1. OXALIPLATIN [Suspect]
     Active Substance: OXALIPLATIN
     Indication: Hepatocellular carcinoma
     Route: 065
  2. FLUOROURACIL [Suspect]
     Active Substance: FLUOROURACIL
     Indication: Hepatocellular carcinoma
     Route: 065
  3. FLUOROURACIL [Suspect]
     Active Substance: FLUOROURACIL
     Route: 042
  4. LEUCOVORIN [Concomitant]
     Active Substance: LEUCOVORIN\LEUCOVORIN CALCIUM
     Route: 065
  5. LENVATINIB [Concomitant]
     Active Substance: LENVATINIB
     Route: 048
  6. SINTILIMAB [Concomitant]
     Active Substance: SINTILIMAB
     Route: 042

REACTIONS (3)
  - Tumour lysis syndrome [Recovered/Resolved]
  - Acute kidney injury [Recovered/Resolved]
  - Product use in unapproved indication [Unknown]
